FAERS Safety Report 8888035 (Version 2)
Quarter: 2012Q4

REPORT INFORMATION
  Report Type: 
  Country: US (occurrence: US)
  Receive Date: 20121106
  Receipt Date: 20121130
  Transmission Date: 20130627
  Serious: Yes (Other)
  Sender: FDA-Public Use
  Company Number: US-PFIZER INC-2012276582

PATIENT
  Age: 57 Year
  Sex: Female
  Weight: 61.22 kg

DRUGS (8)
  1. LYRICA [Suspect]
     Indication: FIBROMYALGIA
     Dosage: 75 mg, UNK
     Route: 048
  2. LYRICA [Suspect]
     Dosage: 75 mg, UNK
     Dates: start: 2011
  3. LYRICA [Suspect]
     Dosage: 100 mg, 1x/day
     Dates: start: 2012
  4. CYMBALTA [Concomitant]
     Indication: DEPRESSION
     Dosage: UNK
  5. LIPITOR [Concomitant]
     Indication: BLOOD CHOLESTEROL ABNORMAL
     Dosage: UNK
  6. VYVANSE [Concomitant]
     Indication: ATTENTION DEFICIT-HYPERACTIVITY DISORDER
     Dosage: UNK
  7. VALIUM [Concomitant]
     Indication: ANXIETY
     Dosage: UNK
  8. OXYCODONE [Concomitant]
     Indication: BACK PAIN
     Dosage: UNK

REACTIONS (4)
  - Lumbar vertebral fracture [Unknown]
  - Intervertebral disc disorder [Unknown]
  - Weight increased [Unknown]
  - Pain [Unknown]
